FAERS Safety Report 11158121 (Version 1)
Quarter: 2015Q2

REPORT INFORMATION
  Report Type: Spontaneous
  Country: US (occurrence: None)
  Receive Date: 20150513
  Receipt Date: 20150513
  Transmission Date: 20150821
  Serious: Yes (Hospitalization)
  Sender: FDA-Public Use
  Company Number: 2014PL000130

PATIENT
  Age: 65 Year
  Sex: Female

DRUGS (1)
  1. IMURAN [Suspect]
     Active Substance: AZATHIOPRINE
     Indication: SARCOIDOSIS
     Dates: start: 201404, end: 201405

REACTIONS (4)
  - Memory impairment [None]
  - Delirium [None]
  - Pyrexia [None]
  - Hallucination [None]

NARRATIVE: CASE EVENT DATE: 201404
